FAERS Safety Report 15002837 (Version 1)
Quarter: 2018Q2

REPORT INFORMATION
  Report Type: Not Available
  Country: US (occurrence: US)
  Receive Date: 20180612
  Receipt Date: 20180612
  Transmission Date: 20180711
  Serious: Yes (Hospitalization)
  Sender: FDA-Public Use
  Company Number: US-NEUROCRINE BIOSCIENCES INC.-2018NBI01704

PATIENT
  Sex: Female

DRUGS (11)
  1. VITAMIN B6 [Concomitant]
     Active Substance: PYRIDOXINE HYDROCHLORIDE
  2. ZYRTEC [Concomitant]
     Active Substance: CETIRIZINE HYDROCHLORIDE
  3. MULTIVITAMIN [Concomitant]
     Active Substance: VITAMINS
  4. GINKOBA [Concomitant]
     Active Substance: GINKGO
  5. INGREZZA [Suspect]
     Active Substance: VALBENAZINE
     Indication: PRODUCT USED FOR UNKNOWN INDICATION
     Route: 048
     Dates: start: 20180425
  6. ATIVAN [Concomitant]
     Active Substance: LORAZEPAM
  7. RISPERDAL [Concomitant]
     Active Substance: RISPERIDONE
  8. SYNTHROID [Concomitant]
     Active Substance: LEVOTHYROXINE SODIUM
  9. PEPCID [Concomitant]
     Active Substance: FAMOTIDINE
  10. TEMAZEPAM. [Concomitant]
     Active Substance: TEMAZEPAM
  11. VITAMIN E [Concomitant]
     Active Substance: .ALPHA.-TOCOPHEROL

REACTIONS (2)
  - Influenza [Unknown]
  - Pneumonia [Unknown]

NARRATIVE: CASE EVENT DATE: 2018
